FAERS Safety Report 22528223 (Version 3)
Quarter: 2023Q2

REPORT INFORMATION
  Report Type: Report from Study
  Country: JP (occurrence: JP)
  Receive Date: 20230607
  Receipt Date: 20230609
  Transmission Date: 20230721
  Serious: Yes (Death, Hospitalization, Other)
  Sender: FDA-Public Use
  Company Number: JP-EXELIXIS-CABO-23064387

PATIENT
  Age: 78 Year
  Sex: Male
  Weight: 65.8 kg

DRUGS (2)
  1. CABOMETYX [Suspect]
     Active Substance: CABOZANTINIB S-MALATE
     Indication: Renal cell carcinoma
     Dosage: 40 MG, QD
     Route: 065
     Dates: start: 20230424, end: 20230508
  2. OPDIVO [Suspect]
     Active Substance: NIVOLUMAB
     Indication: Renal cell carcinoma
     Dosage: 200 MG, Q2WEEKS
     Route: 065
     Dates: start: 20230424, end: 20230508

REACTIONS (4)
  - Drug-induced liver injury [Unknown]
  - Hepatic function abnormal [Unknown]
  - Jaundice cholestatic [Unknown]
  - Renal cell carcinoma [Fatal]

NARRATIVE: CASE EVENT DATE: 20230428
